FAERS Safety Report 15148664 (Version 4)
Quarter: 2019Q2

REPORT INFORMATION
  Report Type: Spontaneous
  Country: JP (occurrence: JP)
  Receive Date: 20180716
  Receipt Date: 20190618
  Transmission Date: 20190711
  Serious: Yes (Death, Life-Threatening, Hospitalization, Other)
  Sender: FDA-Public Use
  Company Number: JP-009507513-1807JPN000474J

PATIENT
  Age: 64 Year
  Sex: Female
  Weight: 37 kg

DRUGS (11)
  1. PRIMPERAN [Concomitant]
     Active Substance: METOCLOPRAMIDE HYDROCHLORIDE
     Indication: PROPHYLAXIS
     Dosage: 5 MG, TID
     Route: 048
     Dates: start: 20180613, end: 20180627
  2. KEYTRUDA [Suspect]
     Active Substance: PEMBROLIZUMAB
     Indication: LUNG ADENOCARCINOMA
     Dosage: 200 MG, Q3W
     Route: 041
     Dates: start: 20180613, end: 20180613
  3. NOVAMIN [Concomitant]
     Indication: NAUSEA
     Dosage: 5 MG, IN TIMES OF NAUSEA, PRN
     Route: 048
     Dates: start: 20180614, end: 20180703
  4. MEDICON [Concomitant]
     Active Substance: DEXTROMETHORPHAN HYDROBROMIDE
     Indication: ANTITUSSIVE THERAPY
     Dosage: 15 MG, TID
     Route: 048
     Dates: start: 20180618, end: 20180703
  5. LOXOPROFEN [Concomitant]
     Active Substance: LOXOPROFEN
     Indication: ANALGESIC THERAPY
     Dosage: 60 MG, TID
     Route: 048
     Dates: start: 20180605, end: 20180703
  6. NEXIUM [Concomitant]
     Active Substance: ESOMEPRAZOLE MAGNESIUM
     Indication: PROPHYLAXIS AGAINST GASTROINTESTINAL ULCER
     Dosage: 20 MG, QD
     Route: 048
     Dates: start: 20180613, end: 20180702
  7. DIHYDROCODEINE PHOSPHATE [Concomitant]
     Active Substance: DIHYDROCODEINE PHOSPHATE
     Indication: ANTITUSSIVE THERAPY
     Dosage: 2 G, COUGH IS TERRIBLE, PRN
     Route: 048
     Dates: start: 20180623, end: 20180703
  8. CALONAL [Concomitant]
     Active Substance: ACETAMINOPHEN
     Indication: ANALGESIC THERAPY
     Dosage: 500 MG, WHEN IT HURTS, PRN
     Route: 048
     Dates: start: 20180612, end: 20180623
  9. OXINORM [Concomitant]
     Indication: ANALGESIC THERAPY
     Dosage: 2.5 MG, WHEN IT HURTS, PRN
     Route: 048
     Dates: start: 20180613, end: 20180703
  10. REBAMIPIDE [Concomitant]
     Active Substance: REBAMIPIDE
     Indication: PROPHYLAXIS
     Dosage: 100 MG, TID
     Route: 048
     Dates: start: 20180605, end: 20180703
  11. LYRICA [Concomitant]
     Active Substance: PREGABALIN
     Indication: ANALGESIC THERAPY
     Dosage: 25 MG, BID
     Route: 048
     Dates: start: 20180605, end: 20180630

REACTIONS (9)
  - Rhabdomyolysis [Not Recovered/Not Resolved]
  - Disseminated intravascular coagulation [Unknown]
  - Malignant neoplasm progression [Unknown]
  - Myositis [Not Recovered/Not Resolved]
  - Anaemia [Unknown]
  - Retroperitoneal haemorrhage [Fatal]
  - Myocarditis [Fatal]
  - Low cardiac output syndrome [Unknown]
  - Liver disorder [Not Recovered/Not Resolved]

NARRATIVE: CASE EVENT DATE: 20180627
